FAERS Safety Report 20947225 (Version 1)
Quarter: 2022Q2

REPORT INFORMATION
  Report Type: Spontaneous
  Country: BR (occurrence: BR)
  Receive Date: 20220610
  Receipt Date: 20220610
  Transmission Date: 20220721
  Serious: Yes (Other)
  Sender: FDA-Public Use
  Company Number: BR-TEVA BRAZIL-2022-BR-2044744

PATIENT
  Sex: Female
  Weight: 38 kg

DRUGS (1)
  1. AZILECT [Suspect]
     Active Substance: RASAGILINE MESYLATE
     Indication: Parkinson^s disease
     Dosage: 1 MILLIGRAM DAILY; 1 MG PER DAY
     Route: 065
     Dates: start: 2018

REACTIONS (6)
  - Shock [Unknown]
  - Malaise [Unknown]
  - Nervousness [Unknown]
  - Depression [Unknown]
  - Crying [Unknown]
  - Product availability issue [Unknown]
